FAERS Safety Report 7283638-6 (Version None)
Quarter: 2011Q1

REPORT INFORMATION
  Report Type: 
  Country: None (occurrence: None)
  Receive Date: 20110209
  Receipt Date: 20110203
  Transmission Date: 20110831
  Serious: Yes (Other)
  Sender: FDA-Public Use
  Company Number: B0698790A

PATIENT
  Sex: Female

DRUGS (1)
  1. VENTOLIN [Suspect]
     Route: 048

REACTIONS (4)
  - SCREAMING [None]
  - CONVERSION DISORDER [None]
  - AGGRESSION [None]
  - ANXIETY [None]
